FAERS Safety Report 6599365-4 (Version None)
Quarter: 2010Q1

REPORT INFORMATION
  Report Type: 
  Country: None (occurrence: None)
  Receive Date: 20100218
  Receipt Date: 20100201
  Transmission Date: 20100710
  Serious: Yes (Hospitalization)
  Sender: FDA-Public Use
  Company Number: DSJ-2010-01524

PATIENT
  Age: 60 Year
  Sex: Male
  Weight: 83 kg

DRUGS (6)
  1. OLMESARTAN MEDOXOMIL [Suspect]
     Indication: ESSENTIAL HYPERTENSION
     Dosage: 20 MG (1 IN 1 D), PER ORAL
     Route: 048
     Dates: start: 20060527
  2. PRAVASTATIN SODIUM [Suspect]
     Indication: DRUG USE FOR UNKNOWN INDICATION
     Dosage: 5 MG (1 IN 1 D), PER ORAL
     Route: 048
  3. NORVASC [Suspect]
     Dosage: 5 MG (1 IN 1 D), PER ORAL
     Route: 048
     Dates: end: 20060623
  4. ALLOPURINOL [Suspect]
     Dosage: 100 MG (1 IN 1 D), PER ORAL
     Route: 048
  5. BLOPRESS (CANDESARTAN CILEXETIL )(CANDESARTAN CILEXETIL) [Concomitant]
  6. CALBLOCK (AZELNIDIPINE)(AZELNIDIPINE) [Concomitant]

REACTIONS (1)
  - PROSTATE CANCER [None]
